FAERS Safety Report 10353224 (Version 3)
Quarter: 2015Q3

REPORT INFORMATION
  Report Type: Report from Study
  Country: US (occurrence: US)
  Receive Date: 20140730
  Receipt Date: 20150731
  Transmission Date: 20151125
  Serious: Yes (Death, Other)
  Sender: FDA-Public Use
  Company Number: US-GILEAD-2014-0109689

PATIENT
  Age: 53 Year
  Sex: Male

DRUGS (5)
  1. AMBRISENTAN [Suspect]
     Active Substance: AMBRISENTAN
     Indication: PULMONARY HYPERTENSION
     Dosage: 5 MG, QD
     Route: 065
     Dates: start: 20140709, end: 201407
  2. REVATIO [Concomitant]
     Active Substance: SILDENAFIL CITRATE
  3. WARFARIN [Concomitant]
     Active Substance: WARFARIN
  4. SILDENAFIL. [Concomitant]
     Active Substance: SILDENAFIL
  5. AMBRISENTAN [Suspect]
     Active Substance: AMBRISENTAN
     Indication: PULMONARY ARTERIAL HYPERTENSION

REACTIONS (2)
  - Eye oedema [Unknown]
  - Death [Fatal]

NARRATIVE: CASE EVENT DATE: 201407
